FAERS Safety Report 7512814-X (Version None)
Quarter: 2011Q2

REPORT INFORMATION
  Report Type: 
  Country: None (occurrence: None)
  Receive Date: 20110531
  Receipt Date: 20110517
  Transmission Date: 20111010
  Serious: Yes (Hospitalization)
  Sender: FDA-Public Use
  Company Number: NL-GENENTECH-319431

PATIENT
  Sex: Male

DRUGS (7)
  1. MYCOPHENOLATE MEFETIL [Concomitant]
     Indication: PROPHYLAXIS AGAINST GRAFT VERSUS HOST DISEASE
     Dosage: 3000 MG, UNK
     Route: 048
     Dates: start: 20110405
  2. DEXAMETHASONE [Suspect]
     Indication: MALIGNANT LYMPHOID NEOPLASM
     Dosage: UNK
     Route: 065
  3. CYCLOSPORINE [Concomitant]
     Indication: PROPHYLAXIS AGAINST GRAFT VERSUS HOST DISEASE
     Dosage: 800 MG, UNK
     Route: 048
     Dates: start: 20110402
  4. CISPLATIN [Suspect]
     Indication: MALIGNANT LYMPHOID NEOPLASM
     Dosage: UNK
     Route: 065
  5. CYTARABINE [Suspect]
     Indication: MALIGNANT LYMPHOID NEOPLASM
     Dosage: UNK
     Route: 065
  6. FLUDARABINE PHOSPHATE [Suspect]
     Indication: MALIGNANT LYMPHOID NEOPLASM
     Dosage: 50 MG, UNK
     Route: 042
     Dates: start: 20110402
  7. RITUXIMAB [Suspect]
     Indication: MALIGNANT LYMPHOID NEOPLASM
     Dosage: UNK
     Route: 065

REACTIONS (1)
  - ACUTE GRAFT VERSUS HOST DISEASE [None]
